FAERS Safety Report 5730014-0 (Version None)
Quarter: 2008Q2

REPORT INFORMATION
  Report Type: 
  Country: None (occurrence: None)
  Receive Date: 20080507
  Receipt Date: 20080430
  Transmission Date: 20081010
  Serious: Yes (Hospitalization)
  Sender: FDA-Public Use
  Company Number: US-JNJFOC-20080500319

PATIENT
  Age: 60 Year
  Sex: Female

DRUGS (1)
  1. TYLENOL COLD MULTI-SYMPTOM DAYTIME RAPID RELEASE [Suspect]
     Indication: HYPERSENSITIVITY
     Route: 048

REACTIONS (3)
  - BLOOD PRESSURE INCREASED [None]
  - OCULAR VASCULAR DISORDER [None]
  - TACHYARRHYTHMIA [None]
